FAERS Safety Report 17113853 (Version 1)
Quarter: 2019Q4

REPORT INFORMATION
  Report Type: Spontaneous
  Country: US (occurrence: US)
  Receive Date: 20191205
  Receipt Date: 20191205
  Transmission Date: 20200122
  Serious: Yes (Other)
  Sender: FDA-Public Use
  Company Number: US-AMGEN-USASP2019201440

PATIENT
  Sex: Female

DRUGS (22)
  1. GAS RELIEF [Concomitant]
     Active Substance: DIMETHICONE
     Dosage: 125 MILLIGRAM
  2. ISOSORBIDE MONONITE [Concomitant]
  3. NEXIUM I.V. [Concomitant]
     Active Substance: ESOMEPRAZOLE SODIUM
     Dosage: 40 MILLIGRAM
  4. CLARITINE [Concomitant]
     Active Substance: LORATADINE
     Dosage: 10 MILLIGRAM
  5. MUCINEX [Concomitant]
     Active Substance: GUAIFENESIN
  6. REPATHA [Suspect]
     Active Substance: EVOLOCUMAB
     Indication: ARTERIOSCLEROSIS CORONARY ARTERY
     Dosage: 140 MILLIGRAM, Q2WK
     Route: 065
  7. BENADRYL 24 D [Concomitant]
     Active Substance: LORATADINE\PSEUDOEPHEDRINE SULFATE
  8. QUINAPRIL. [Concomitant]
     Active Substance: QUINAPRIL
     Dosage: 40 MILLIGRAM
  9. CLOPIDOGREL [Concomitant]
     Active Substance: CLOPIDOGREL BISULFATE
     Dosage: 75 MILLIGRAM
  10. FLUZONE [Concomitant]
     Active Substance: INFLUENZA A VIRUS A/CALIFORNIA/7/2009 X-179A (H1N1) ANTIGEN (FORMALDEHYDE INACTIVATED)\INFLUENZA A VIRUS A/VICTORIA/210/2009 X-187 (H3N2) ANTIGEN (FORMALDEHYDE INACTIVATED)\INFLUENZA B VIRUS B/BRISBANE/60/2008 ANTIGEN (FORMALDEHYDE INACTIVATED)
  11. PANTOPRAZOLE [Concomitant]
     Active Substance: PANTOPRAZOLE
     Dosage: 40 MILLIGRAM
  12. OMEPRAZOLE. [Concomitant]
     Active Substance: OMEPRAZOLE
  13. ASPIRIN (E.C.) [Concomitant]
     Active Substance: ASPIRIN
     Dosage: 325 MILLIGRAM
  14. ONDANSETRON [Concomitant]
     Active Substance: ONDANSETRON
     Dosage: 40 MILLIGRAM
  15. LOSARTAN POTASSIUM. [Concomitant]
     Active Substance: LOSARTAN POTASSIUM
  16. AMLODIPINE [Concomitant]
     Active Substance: AMLODIPINE BESYLATE
     Dosage: 10 MILLIGRAM
  17. METAMUCIL FIBRE THERAPY [Concomitant]
     Active Substance: PLANTAGO OVATA SEED
  18. ANTI-DIARRHEAL [Concomitant]
     Active Substance: LOPERAMIDE HYDROCHLORIDE
     Dosage: 2 MILLIGRAM
  19. HEMORRHOIDAL [PARAFFIN, LIQUID;PETROLATUM;PHENYLEPHRINE HYDROCHLORIDE; [Concomitant]
  20. ZETIA [Concomitant]
     Active Substance: EZETIMIBE
     Dosage: 10 MILLIGRAM
  21. CARVEDILOL. [Concomitant]
     Active Substance: CARVEDILOL
  22. VOLTAREN [DICLOFENAC] [Concomitant]
     Active Substance: DICLOFENAC SODIUM

REACTIONS (1)
  - Pruritus [Unknown]
